FAERS Safety Report 5523602-8 (Version None)
Quarter: 2007Q4

REPORT INFORMATION
  Report Type: 
  Country: None (occurrence: None)
  Receive Date: 20071121
  Receipt Date: 20071113
  Transmission Date: 20080405
  Serious: Yes (Hospitalization, Other)
  Sender: FDA-Public Use
  Company Number: US-JNJFOC-20071003482

PATIENT
  Sex: Female
  Weight: 93.9 kg

DRUGS (12)
  1. REMICADE [Suspect]
     Indication: RHEUMATOID ARTHRITIS
     Route: 042
  2. VICODIN [Concomitant]
     Indication: PAIN
  3. ADVAIR DISKUS 100/50 [Concomitant]
     Indication: ASTHMA
  4. PREDNISONE TAB [Concomitant]
     Indication: RHEUMATOID ARTHRITIS
  5. PROZAC [Concomitant]
     Indication: DEPRESSION
  6. XOPENEX [Concomitant]
  7. SINGULAIR [Concomitant]
     Indication: ASTHMA
  8. COMBIVENT [Concomitant]
     Indication: ASTHMA
  9. TYLENOL [Concomitant]
     Indication: PAIN
  10. ALLEGRA [Concomitant]
     Indication: MULTIPLE ALLERGIES
  11. FISH OIL [Concomitant]
  12. FLAXSEED [Concomitant]

REACTIONS (1)
  - CERVIX CARCINOMA [None]
